FAERS Safety Report 15667129 (Version 4)
Quarter: 2021Q2

REPORT INFORMATION
  Report Type: Spontaneous
  Country: US (occurrence: US)
  Receive Date: 20181128
  Receipt Date: 20210602
  Transmission Date: 20210716
  Serious: No
  Sender: FDA-Public Use
  Company Number: US-ROCHE-2188825

PATIENT
  Age: 34 Year
  Sex: Female

DRUGS (1)
  1. OCREVUS [Suspect]
     Active Substance: OCRELIZUMAB
     Indication: RELAPSING-REMITTING MULTIPLE SCLEROSIS
     Route: 042
     Dates: start: 20180401

REACTIONS (9)
  - Photosensitivity reaction [Recovered/Resolved]
  - Sunburn [Not Recovered/Not Resolved]
  - Feeling abnormal [Recovered/Resolved]
  - Throat irritation [Recovered/Resolved]
  - Malaise [Unknown]
  - Throat irritation [Not Recovered/Not Resolved]
  - Sunburn [Not Recovered/Not Resolved]
  - Ear pruritus [Not Recovered/Not Resolved]
  - Ear pruritus [Recovered/Resolved]

NARRATIVE: CASE EVENT DATE: 201804
